FAERS Safety Report 12523211 (Version 1)
Quarter: 2016Q3

REPORT INFORMATION
  Report Type: Spontaneous
  Country: US (occurrence: US)
  Receive Date: 20160702
  Receipt Date: 20160702
  Transmission Date: 20161109
  Serious: No
  Sender: FDA-Public Use
  Company Number: US-BIOGEN-2016BI00256701

PATIENT
  Sex: Female

DRUGS (1)
  1. TECFIDERA [Suspect]
     Active Substance: DIMETHYL FUMARATE
     Indication: MULTIPLE SCLEROSIS
     Route: 065
     Dates: start: 20151008, end: 20160613

REACTIONS (7)
  - Paraesthesia [Unknown]
  - Feeling abnormal [Unknown]
  - Mobility decreased [Unknown]
  - Hypoaesthesia [Unknown]
  - Malaise [Unknown]
  - Multiple sclerosis [Unknown]
  - Hypersensitivity [Recovered/Resolved]

NARRATIVE: CASE EVENT DATE: 2015
